FAERS Safety Report 15531227 (Version 3)
Quarter: 2018Q4

REPORT INFORMATION
  Report Type: Spontaneous
  Country: JP (occurrence: JP)
  Receive Date: 20181019
  Receipt Date: 20181207
  Transmission Date: 20190205
  Serious: Yes (Hospitalization)
  Sender: FDA-Public Use
  Company Number: JP-AMGEN-JPNSP2018146733

PATIENT
  Age: 63 Year
  Sex: Female

DRUGS (16)
  1. ENDOXAN [Suspect]
     Active Substance: CYCLOPHOSPHAMIDE
     Indication: BREAST CANCER
     Dosage: 770 MG, UNK
     Route: 041
     Dates: start: 20180629, end: 20180629
  2. G-LASTA [Suspect]
     Active Substance: PEGFILGRASTIM
     Dosage: 3.6 MG, UNK
     Route: 058
     Dates: start: 20180723, end: 20180723
  3. 5-FU [Suspect]
     Active Substance: FLUOROURACIL
     Dosage: 770 MG, UNK
     Route: 041
     Dates: start: 20180810, end: 20180810
  4. FARMORUBICIN [Suspect]
     Active Substance: EPIRUBICIN HYDROCHLORIDE
     Indication: BREAST CANCER
     Dosage: 154 MG, UNK
     Route: 041
     Dates: start: 20180629, end: 20180629
  5. ENDOXAN [Suspect]
     Active Substance: CYCLOPHOSPHAMIDE
     Dosage: 770 MG, UNK
     Route: 041
     Dates: start: 20180810, end: 20180810
  6. ENDOXAN [Suspect]
     Active Substance: CYCLOPHOSPHAMIDE
     Dosage: 770 MG, UNK
     Route: 041
     Dates: start: 20180914, end: 20180914
  7. G-LASTA [Suspect]
     Active Substance: PEGFILGRASTIM
     Dosage: 3.6 MG, UNK
     Route: 058
     Dates: start: 20180917, end: 20180917
  8. ENDOXAN [Suspect]
     Active Substance: CYCLOPHOSPHAMIDE
     Dosage: 770 MG, UNK
     Route: 041
     Dates: start: 20180720, end: 20180720
  9. G-LASTA [Suspect]
     Active Substance: PEGFILGRASTIM
     Indication: COLONY STIMULATING FACTOR THERAPY
     Dosage: 3.6 MG, UNK
     Route: 058
     Dates: start: 20180702, end: 20180702
  10. 5-FU [Suspect]
     Active Substance: FLUOROURACIL
     Indication: BREAST CANCER
     Dosage: 770 MG, UNK
     Route: 041
     Dates: start: 20180629, end: 20180629
  11. 5-FU [Suspect]
     Active Substance: FLUOROURACIL
     Dosage: 770 MG, UNK
     Route: 041
     Dates: start: 20180914, end: 20180914
  12. 5-FU [Suspect]
     Active Substance: FLUOROURACIL
     Dosage: 770 MG, UNK
     Route: 041
     Dates: start: 20180720, end: 20180720
  13. FARMORUBICIN [Suspect]
     Active Substance: EPIRUBICIN HYDROCHLORIDE
     Dosage: 154 MG, UNK
     Route: 041
     Dates: start: 20180720, end: 20180720
  14. FARMORUBICIN [Suspect]
     Active Substance: EPIRUBICIN HYDROCHLORIDE
     Dosage: 154 MG, UNK
     Route: 041
     Dates: start: 20180914, end: 20180914
  15. G-LASTA [Suspect]
     Active Substance: PEGFILGRASTIM
     Dosage: 3.6 MG, UNK
     Route: 058
     Dates: start: 20180813, end: 20180813
  16. FARMORUBICIN [Suspect]
     Active Substance: EPIRUBICIN HYDROCHLORIDE
     Dosage: 154 MG, UNK
     Route: 041
     Dates: start: 20180810, end: 20180810

REACTIONS (1)
  - Platelet count decreased [Recovered/Resolved]

NARRATIVE: CASE EVENT DATE: 20180922
